FAERS Safety Report 16353061 (Version 1)
Quarter: 2019Q2

REPORT INFORMATION
  Report Type: Spontaneous
  Country: US (occurrence: US)
  Receive Date: 20190524
  Receipt Date: 20190524
  Transmission Date: 20190711
  Serious: Yes (Hospitalization)
  Sender: FDA-Public Use
  Company Number: US-ASTRAZENECA-2019SE74593

PATIENT
  Age: 53 Year
  Sex: Female
  Weight: 52.2 kg

DRUGS (1)
  1. SYMBICORT [Suspect]
     Active Substance: BUDESONIDE\FORMOTEROL FUMARATE DIHYDRATE
     Indication: CHRONIC OBSTRUCTIVE PULMONARY DISEASE
     Dosage: 160/4.5MCG 2 PUFFS TWICE A DAY
     Route: 055
     Dates: start: 2014

REACTIONS (11)
  - Pulmonary thrombosis [Unknown]
  - Visual impairment [Unknown]
  - Panic attack [Unknown]
  - Wrong technique in product usage process [Unknown]
  - Rib fracture [Unknown]
  - Device issue [Unknown]
  - Pain [Unknown]
  - Body height decreased [Unknown]
  - Pharyngeal swelling [Unknown]
  - Hypersensitivity [Unknown]
  - Contusion [Unknown]

NARRATIVE: CASE EVENT DATE: 2014
